FAERS Safety Report 8989941 (Version 1)
Quarter: 2012Q4

REPORT INFORMATION
  Report Type: 
  Country: FR (occurrence: FR)
  Receive Date: 20121228
  Receipt Date: 20121228
  Transmission Date: 20130627
  Serious: Yes (Other)
  Sender: FDA-Public Use
  Company Number: FR-GLAXOSMITHKLINE-B0854055A

PATIENT
  Age: 69 Year
  Sex: Female

DRUGS (20)
  1. DEROXAT [Suspect]
     Indication: POST-TRAUMATIC STRESS DISORDER
     Dosage: 20MG Per day
     Route: 065
     Dates: start: 20121110, end: 20121113
  2. CIFLOX [Suspect]
     Indication: STAPHYLOCOCCAL INFECTION
     Dosage: 400MG per day
     Route: 042
     Dates: start: 20121001, end: 20121114
  3. RIFADINE [Suspect]
     Indication: STAPHYLOCOCCAL INFECTION
     Dosage: 600MG per day
     Route: 042
     Dates: start: 20121002, end: 20121114
  4. KARDEGIC [Concomitant]
  5. RAMIPRIL [Concomitant]
  6. ATENOLOL [Concomitant]
  7. DAFALGAN [Concomitant]
  8. PLAVIX [Concomitant]
  9. TAHOR [Concomitant]
  10. LASILIX RETARD [Concomitant]
  11. MYOLASTAN [Concomitant]
  12. RIVOTRIL [Concomitant]
  13. EUPANTOL [Concomitant]
     Indication: ULCER
     Dates: start: 20121015
  14. PYOSTACINE [Concomitant]
     Indication: STAPHYLOCOCCAL INFECTION
     Route: 065
     Dates: start: 20120831, end: 20120926
  15. ROCEPHINE [Concomitant]
     Indication: STAPHYLOCOCCAL INFECTION
     Dates: start: 20120926, end: 20120929
  16. ZYVOXID [Concomitant]
     Indication: STAPHYLOCOCCAL INFECTION
     Dates: start: 20120929, end: 20120930
  17. AUGMENTIN [Concomitant]
     Indication: STAPHYLOCOCCAL INFECTION
     Dates: start: 20120929, end: 20121001
  18. GENTAMICINE [Concomitant]
     Indication: STAPHYLOCOCCAL INFECTION
     Route: 042
     Dates: start: 20120929, end: 20121008
  19. ORBENINE [Concomitant]
     Indication: STAPHYLOCOCCAL INFECTION
     Route: 065
     Dates: start: 20121001, end: 20121013
  20. COLCHICINE [Concomitant]
     Dates: start: 20121024, end: 20121025

REACTIONS (3)
  - Rash erythematous [Recovering/Resolving]
  - Eosinophil count increased [Recovered/Resolved]
  - Transaminases increased [Recovered/Resolved]
